FAERS Safety Report 8540670-X (Version None)
Quarter: 2012Q3

REPORT INFORMATION
  Report Type: 
  Country: None (occurrence: None)
  Receive Date: 20120726
  Receipt Date: 20120717
  Transmission Date: 20120928
  Serious: Yes (Other)
  Sender: FDA-Public Use
  Company Number: US-ASTRAZENECA-2012SE13764

PATIENT
  Age: 31181 Day
  Sex: Female
  Weight: 45.4 kg

DRUGS (3)
  1. VITAMIN DRIP [Concomitant]
  2. ARIMIDEX [Suspect]
     Indication: BREAST CANCER
     Route: 048
     Dates: start: 20110606
  3. LEVOTHYROXINE SODIUM [Concomitant]

REACTIONS (17)
  - WEIGHT DECREASED [None]
  - URINE COLOUR ABNORMAL [None]
  - ALOPECIA [None]
  - HYPERCHLORHYDRIA [None]
  - DRUG DOSE OMISSION [None]
  - PRURITUS [None]
  - RENAL DISORDER [None]
  - CANCER IN REMISSION [None]
  - DRY SKIN [None]
  - VAGINAL DISCHARGE [None]
  - BLOOD URINE PRESENT [None]
  - ABDOMINAL DISTENSION [None]
  - VULVOVAGINAL BURNING SENSATION [None]
  - MUSCLE SPASMS [None]
  - DEPRESSED MOOD [None]
  - MUSCULOSKELETAL STIFFNESS [None]
  - HAEMATURIA [None]
